FAERS Safety Report 18271668 (Version 2)
Quarter: 2020Q4

REPORT INFORMATION
  Report Type: Spontaneous
  Country: JP (occurrence: JP)
  Receive Date: 20200916
  Receipt Date: 20201008
  Transmission Date: 20210113
  Serious: Yes (Hospitalization, Other)
  Sender: FDA-Public Use
  Company Number: NVSJ2020JP008866

PATIENT
  Age: 70 Year
  Sex: Female

DRUGS (1)
  1. REVOLADE TAB [Suspect]
     Active Substance: ELTROMBOPAG
     Indication: IMMUNE THROMBOCYTOPENIA
     Dosage: 12.5 MG
     Route: 048
     Dates: start: 202002

REACTIONS (7)
  - Infection [Unknown]
  - Fibrin D dimer increased [Recovered/Resolved]
  - Renal failure [Recovered/Resolved]
  - C-reactive protein increased [Unknown]
  - Blood lactate dehydrogenase increased [Recovered/Resolved]
  - Pyrexia [Unknown]
  - Cerebral infarction [Recovered/Resolved]

NARRATIVE: CASE EVENT DATE: 20200819
